FAERS Safety Report 22264019 (Version 2)
Quarter: 2023Q2

REPORT INFORMATION
  Report Type: Spontaneous
  Country: CO (occurrence: CO)
  Receive Date: 20230428
  Receipt Date: 20230615
  Transmission Date: 20230721
  Serious: No
  Sender: FDA-Public Use
  Company Number: CO-PFIZER INC-PV202300072487

PATIENT

DRUGS (1)
  1. GENOTROPIN [Suspect]
     Active Substance: SOMATROPIN
     Dosage: 0.8 MG
     Route: 058

REACTIONS (5)
  - Drug dose omission by device [Unknown]
  - Multiple use of single-use product [Unknown]
  - Wrong device used [Unknown]
  - Incorrect dose administered by device [Unknown]
  - Device occlusion [Unknown]
